FAERS Safety Report 15060086 (Version 1)
Quarter: 2018Q2

REPORT INFORMATION
  Report Type: Spontaneous
  Country: US (occurrence: US)
  Receive Date: 20180605
  Receipt Date: 20180605
  Transmission Date: 20180711
  Serious: Yes (Hospitalization)
  Sender: FDA-Public Use
  Company Number: None

PATIENT
  Age: 75 Year
  Sex: Male

DRUGS (14)
  1. AZELASTINE SPR [Concomitant]
  2. XARELTO [Concomitant]
     Active Substance: RIVAROXABAN
  3. TAMSULOSIN [Concomitant]
     Active Substance: TAMSULOSIN
  4. ALPRAZOLAM. [Concomitant]
     Active Substance: ALPRAZOLAM
  5. ZOLINZA [Suspect]
     Active Substance: VORINOSTAT
     Indication: MYCOSIS FUNGOIDES
     Route: 048
     Dates: start: 20180413
  6. ATORVASTATIN [Concomitant]
     Active Substance: ATORVASTATIN
  7. FLECAINIDE [Concomitant]
     Active Substance: FLECAINIDE
  8. EZETIMIBE. [Concomitant]
     Active Substance: EZETIMIBE
  9. CARB/LEVO [Concomitant]
     Active Substance: CARBIDOPA\LEVODOPA
  10. DULOXETINE. [Concomitant]
     Active Substance: DULOXETINE
  11. FLUTICASONE. [Concomitant]
     Active Substance: FLUTICASONE
  12. BREO ELLIPTA INH [Concomitant]
  13. ZOLPIDEM [Concomitant]
     Active Substance: ZOLPIDEM\ZOLPIDEM TARTRATE
  14. PROFERRIN [Concomitant]

REACTIONS (3)
  - Asthenia [None]
  - Fatigue [None]
  - Corona virus infection [None]

NARRATIVE: CASE EVENT DATE: 201805
